FAERS Safety Report 8104649-4 (Version None)
Quarter: 2012Q1

REPORT INFORMATION
  Report Type: 
  Country: None (occurrence: None)
  Receive Date: 20120201
  Receipt Date: 20120127
  Transmission Date: 20120608
  Serious: Yes (Other)
  Sender: FDA-Public Use
  Company Number: US-PFIZER INC-2012023571

PATIENT
  Sex: Female
  Weight: 63.946 kg

DRUGS (5)
  1. CHANTIX [Suspect]
     Dosage: UNK
     Route: 048
     Dates: start: 20110101, end: 20110101
  2. LEVOXYL [Concomitant]
     Indication: THYROID DISORDER
     Dosage: UNK
  3. CHANTIX [Suspect]
     Indication: SMOKING CESSATION THERAPY
     Dosage: 0.5 MG, 1X/DAY
     Route: 048
     Dates: start: 20110101, end: 20110101
  4. AMIODARONE [Concomitant]
     Indication: CORONARY ARTERY OCCLUSION
     Dosage: UNK
  5. AMLODIPINE [Concomitant]
     Indication: HYPERTENSION
     Dosage: UNK

REACTIONS (3)
  - FEELING ABNORMAL [None]
  - SUICIDAL IDEATION [None]
  - MALAISE [None]
